FAERS Safety Report 6218852-1 (Version None)
Quarter: 2009Q2

REPORT INFORMATION
  Report Type: 
  Country: None (occurrence: None)
  Receive Date: 20090605
  Receipt Date: 20090520
  Transmission Date: 20091009
  Serious: Yes (Other)
  Sender: FDA-Public Use
  Company Number: DE-GENENTECH-283859

PATIENT
  Age: 78 Year

DRUGS (2)
  1. LUCENTIS [Suspect]
     Indication: DRUG USE FOR UNKNOWN INDICATION
     Dosage: UNK
     Route: 031
     Dates: start: 20080101
  2. ACTIVASE [Concomitant]
     Indication: VISUAL ACUITY REDUCED

REACTIONS (1)
  - VITREOUS HAEMORRHAGE [None]
